FAERS Safety Report 9841508 (Version 1)
Quarter: 2013Q4

REPORT INFORMATION
  Report Type: Spontaneous
  Country: US (occurrence: None)
  Receive Date: 20131216
  Receipt Date: 20131216
  Transmission Date: 20140711
  Serious: Yes (Hospitalization)
  Sender: FDA-Public Use
  Company Number: E7389-04318-SPO-US

PATIENT
  Sex: Female

DRUGS (1)
  1. HALAVEN [Suspect]
     Indication: BREAST CANCER
     Dosage: INFUSION, DAY 1 AND 8 OF 21 DAY
     Route: 042
     Dates: start: 2013, end: 2013

REACTIONS (1)
  - Pneumonia [None]
